FAERS Safety Report 9353524 (Version 1)
Quarter: 2013Q2

REPORT INFORMATION
  Report Type: Spontaneous
  Country: US (occurrence: US)
  Receive Date: 20130618
  Receipt Date: 20130618
  Transmission Date: 20140414
  Serious: Yes (Other)
  Sender: FDA-Public Use
  Company Number: US-JNJFOC-20130602622

PATIENT
  Sex: Male
  Weight: 63.5 kg

DRUGS (8)
  1. PANCREAZE [Suspect]
     Indication: PANCREATITIS
     Dosage: 16800 UNITS
     Route: 048
  2. OMEPRAZOLE [Concomitant]
     Indication: ABDOMINAL PAIN
     Route: 048
  3. OMEPRAZOLE [Concomitant]
     Indication: GASTROOESOPHAGEAL REFLUX DISEASE
     Route: 048
  4. ATIVAN [Concomitant]
     Indication: SLEEP DISORDER THERAPY
     Route: 048
     Dates: start: 2012
  5. VITAMIN B1 [Concomitant]
     Indication: PROPHYLAXIS
     Route: 048
     Dates: start: 2012
  6. VITAMIN B12 [Concomitant]
     Indication: PROPHYLAXIS
     Route: 048
     Dates: start: 2012
  7. VITAMIN  B6 [Concomitant]
     Indication: PROPHYLAXIS
     Route: 048
     Dates: start: 2012
  8. VITAMIN C [Concomitant]
     Indication: PROPHYLAXIS
     Route: 048
     Dates: start: 2012

REACTIONS (8)
  - Temporal lobe epilepsy [Not Recovered/Not Resolved]
  - Gastrooesophageal reflux disease [Not Recovered/Not Resolved]
  - Treatment noncompliance [Unknown]
  - Disturbance in attention [Unknown]
  - Poor quality drug administered [Unknown]
  - Drug dose omission [Recovered/Resolved]
  - Diarrhoea [Not Recovered/Not Resolved]
  - Flatulence [Not Recovered/Not Resolved]
